FAERS Safety Report 14150283 (Version 1)
Quarter: 2017Q4

REPORT INFORMATION
  Report Type: Spontaneous
  Country: US (occurrence: US)
  Receive Date: 20171101
  Receipt Date: 20171101
  Transmission Date: 20180321
  Serious: No
  Sender: FDA-Public Use
  Company Number: US-NOVOPROD-555920

PATIENT
  Age: 66 Year
  Sex: Female

DRUGS (1)
  1. VAGIFEM LD [Suspect]
     Active Substance: ESTRADIOL
     Indication: MENOPAUSE
     Dosage: 10 MCG
     Route: 067
     Dates: start: 201706, end: 201707

REACTIONS (4)
  - Pruritus [Recovered/Resolved]
  - Vulvovaginal pruritus [Recovered/Resolved]
  - Urticaria [Recovered/Resolved]
  - Eye pruritus [Recovered/Resolved]

NARRATIVE: CASE EVENT DATE: 201706
